FAERS Safety Report 6184718-9 (Version None)
Quarter: 2009Q2

REPORT INFORMATION
  Report Type: 
  Country: None (occurrence: None)
  Receive Date: 20090508
  Receipt Date: 20090427
  Transmission Date: 20091009
  Serious: Yes (Other)
  Sender: FDA-Public Use
  Company Number: JP-PFIZER INC-2009183813

PATIENT
  Age: 26 Year

DRUGS (6)
  1. ZOLOFT [Suspect]
     Indication: DEPRESSION
     Dosage: 50 MG, 2X/DAY
     Route: 048
     Dates: start: 20090130, end: 20090215
  2. DOGMATYL [Concomitant]
     Indication: DEPRESSION
     Dosage: 100 MG, 1X/DAY
     Route: 048
  3. TRICYCLIC ANTIDEPRESSANTS [Concomitant]
     Dosage: UNK
  4. TOLEDOMIN [Concomitant]
     Dates: end: 20090204
  5. SEPAZON [Concomitant]
  6. DEPAKENE [Concomitant]
     Dates: start: 20090204, end: 20090206

REACTIONS (2)
  - ERYTHEMA MULTIFORME [None]
  - INSOMNIA [None]
